FAERS Safety Report 18875330 (Version 2)
Quarter: 2021Q2

REPORT INFORMATION
  Report Type: Spontaneous
  Country: US (occurrence: US)
  Receive Date: 20210210
  Receipt Date: 20210405
  Transmission Date: 20210717
  Serious: Yes (Other)
  Sender: FDA-Public Use
  Company Number: US-ALXN-A202101808

PATIENT
  Age: 44 Year
  Sex: Male

DRUGS (2)
  1. ULTOMIRIS [Suspect]
     Active Substance: RAVULIZUMAB-CWVZ
     Indication: PAROXYSMAL NOCTURNAL HAEMOGLOBINURIA
     Dosage: 3300 MG, EVERY 8 WEEKS
     Route: 042
  2. SOLIRIS [Suspect]
     Active Substance: ECULIZUMAB
     Indication: PAROXYSMAL NOCTURNAL HAEMOGLOBINURIA
     Dosage: 900 MG, Q2W
     Route: 065

REACTIONS (8)
  - Extravascular haemolysis [Not Recovered/Not Resolved]
  - Fatigue [Not Recovered/Not Resolved]
  - Platelet count decreased [Unknown]
  - Dyspnoea exertional [Not Recovered/Not Resolved]
  - Reticulocyte count increased [Unknown]
  - Blood lactate dehydrogenase increased [Unknown]
  - Anaemia [Not Recovered/Not Resolved]
  - Haemoglobin decreased [Unknown]
